FAERS Safety Report 7358571-1 (Version None)
Quarter: 2011Q1

REPORT INFORMATION
  Report Type: 
  Country: None (occurrence: None)
  Receive Date: 20110310
  Receipt Date: 20110303
  Transmission Date: 20110831
  Serious: Yes (Hospitalization)
  Sender: FDA-Public Use
  Company Number: 2011SP000691

PATIENT
  Age: 11 Year
  Sex: Female

DRUGS (3)
  1. CLONIDINE [Concomitant]
  2. LATUDA [Suspect]
     Indication: AFFECTIVE DISORDER
     Dosage: 40 MG;QD;ORAL; 80 MG;QD;ORAL
     Route: 048
     Dates: start: 20110220, end: 20110226
  3. LATUDA [Suspect]
     Indication: AFFECTIVE DISORDER
     Dosage: 40 MG;QD;ORAL; 80 MG;QD;ORAL
     Route: 048
     Dates: start: 20110216, end: 20110219

REACTIONS (1)
  - SUICIDAL IDEATION [None]
